FAERS Safety Report 18341341 (Version 1)
Quarter: 2020Q4

REPORT INFORMATION
  Report Type: Report from Study
  Country: CO (occurrence: CO)
  Receive Date: 20201003
  Receipt Date: 20201003
  Transmission Date: 20210113
  Serious: Yes (Other)
  Sender: FDA-Public Use
  Company Number: NVSC2020CO244540

PATIENT
  Sex: Female

DRUGS (2)
  1. KISQALI [Suspect]
     Active Substance: RIBOCICLIB
     Indication: BREAST CANCER METASTATIC
     Dosage: 200 MG, QD
     Route: 048
  2. LETROZOLE. [Suspect]
     Active Substance: LETROZOLE
     Indication: BREAST CANCER
     Dosage: 25 MG, QD
     Route: 065

REACTIONS (7)
  - Metastases to central nervous system [Unknown]
  - Anxiety [Unknown]
  - Crying [Unknown]
  - Tongue disorder [Unknown]
  - Depression [Unknown]
  - Breast cancer recurrent [Unknown]
  - Stress [Unknown]
